FAERS Safety Report 25559236 (Version 2)
Quarter: 2025Q4

REPORT INFORMATION
  Report Type: Spontaneous
  Country: US (occurrence: US)
  Receive Date: 20250715
  Receipt Date: 20251002
  Transmission Date: 20260117
  Serious: Yes (Hospitalization, Other)
  Sender: NOVO NORDISK
  Company Number: US-NOVOPROD-1394174

PATIENT
  Age: 50 Year
  Sex: Female
  Weight: 75.7 kg

DRUGS (8)
  1. OZEMPIC [Suspect]
     Active Substance: SEMAGLUTIDE
     Dosage: 0.5 MG, QW
     Dates: start: 20230608, end: 20231206
  2. OZEMPIC [Suspect]
     Active Substance: SEMAGLUTIDE
     Indication: Type 1 diabetes mellitus
     Dosage: 0.25 MG, QW
     Dates: start: 20230511, end: 20230601
  3. OZEMPIC [Suspect]
     Active Substance: SEMAGLUTIDE
     Indication: Type 1 diabetes mellitus
     Dosage: 2 MG, QW
     Dates: start: 20231213, end: 20240201
  4. HUMALOG [Concomitant]
     Active Substance: INSULIN LISPRO
     Indication: Diabetes mellitus
     Dosage: UNK
     Dates: start: 20200101
  5. PREGABALIN [Concomitant]
     Active Substance: PREGABALIN
     Indication: Neuropathy peripheral
     Dosage: UNK
     Dates: start: 20230101
  6. HYDROXYZINE [Concomitant]
     Active Substance: HYDROXYZINE HYDROCHLORIDE
     Indication: Neuropathy peripheral
     Dosage: UNK
     Dates: start: 20230101
  7. ROBAXIN [Concomitant]
     Active Substance: METHOCARBAMOL
     Indication: Neuropathy peripheral
     Dosage: UNK
     Dates: start: 20230101
  8. EUTHYROX [Concomitant]
     Active Substance: LEVOTHYROXINE SODIUM
     Indication: Hypothyroidism
     Dosage: UNK
     Dates: start: 20100101

REACTIONS (7)
  - Malnutrition [Recovered/Resolved]
  - Dehydration [Recovered/Resolved]
  - Impaired gastric emptying [Recovered/Resolved]
  - Constipation [Recovered/Resolved]
  - Anxiety [Unknown]
  - Panic disorder [Unknown]
  - Off label use [Unknown]

NARRATIVE: CASE EVENT DATE: 20230501
